FAERS Safety Report 24398530 (Version 7)
Quarter: 2025Q1

REPORT INFORMATION
  Report Type: Report from Study
  Country: US (occurrence: US)
  Receive Date: 20241004
  Receipt Date: 20250206
  Transmission Date: 20250409
  Serious: Yes (Other)
  Sender: UCB
  Company Number: US-UCBSA-2024050121

PATIENT
  Sex: Male
  Weight: 53.3 kg

DRUGS (7)
  1. FINTEPLA [Suspect]
     Active Substance: FENFLURAMINE
     Indication: Lennox-Gastaut syndrome
     Dosage: 5.9 MILLILITER, 2X/DAY (BID)
     Route: 048
     Dates: start: 20240913, end: 2024
  2. FINTEPLA [Suspect]
     Active Substance: FENFLURAMINE
     Dosage: 4.5 MILLILITER, 2X/DAY (BID)
     Route: 048
     Dates: start: 2024
  3. FINTEPLA [Suspect]
     Active Substance: FENFLURAMINE
     Dosage: 4.5 MILLILITER, 2X/DAY (BID)
     Dates: start: 2024
  4. FINTEPLA [Suspect]
     Active Substance: FENFLURAMINE
     Dosage: 4.5 MILLILITER, 2X/DAY (BID)
  5. EPIDIOLEX [Concomitant]
     Active Substance: CANNABIDIOL
     Indication: Product used for unknown indication
     Dosage: 500 MILLIGRAM VIA GASTRECTOMY TUBE, 2X/DAY (BID)
  6. LEVETIRACETAM [Concomitant]
     Active Substance: LEVETIRACETAM
     Indication: Product used for unknown indication
     Dosage: 1500 MILLIGRAM VIA GASTRECTOMY TUBE, 2X/DAY (BID)
  7. VALPROIC ACID [Concomitant]
     Active Substance: VALPROIC ACID
     Indication: Product used for unknown indication
     Dosage: 400 MILLIGRAM VIA GASTRECTOMY TUBE, 3X/DAY (TID)

REACTIONS (12)
  - Generalised tonic-clonic seizure [Not Recovered/Not Resolved]
  - Seizure [Not Recovered/Not Resolved]
  - Decreased appetite [Not Recovered/Not Resolved]
  - Fatigue [Not Recovered/Not Resolved]
  - Drooling [Not Recovered/Not Resolved]
  - Diarrhoea [Not Recovered/Not Resolved]
  - Decreased interest [Not Recovered/Not Resolved]
  - Sedation [Recovered/Resolved]
  - Urinary tract infection [Not Recovered/Not Resolved]
  - Constipation [Not Recovered/Not Resolved]
  - Wisdom teeth removal [Not Recovered/Not Resolved]
  - Drug ineffective [Unknown]

NARRATIVE: CASE EVENT DATE: 20240101
